FAERS Safety Report 20639914 (Version 1)
Quarter: 2022Q1

REPORT INFORMATION
  Report Type: Spontaneous
  Country: US (occurrence: US)
  Receive Date: 20220326
  Receipt Date: 20220326
  Transmission Date: 20220424
  Serious: No
  Sender: FDA-Public Use
  Company Number: US-SA-SAC20220317000556

PATIENT
  Age: 50 Year
  Sex: Female

DRUGS (4)
  1. DUPIXENT [Suspect]
     Active Substance: DUPILUMAB
     Indication: Dermatitis atopic
     Dosage: 300 MG, QOW
     Route: 058
  2. HYDROCHLOROTHIAZIDE [Concomitant]
     Active Substance: HYDROCHLOROTHIAZIDE
  3. VENLAFAXINE [Concomitant]
     Active Substance: VENLAFAXINE HYDROCHLORIDE
  4. XYZAL [Concomitant]
     Active Substance: LEVOCETIRIZINE DIHYDROCHLORIDE

REACTIONS (4)
  - Discomfort [Unknown]
  - Insomnia [Unknown]
  - Rash [Unknown]
  - Dermatitis atopic [Unknown]

NARRATIVE: CASE EVENT DATE: 20211001
